FAERS Safety Report 18469210 (Version 2)
Quarter: 2020Q4

REPORT INFORMATION
  Report Type: Spontaneous
  Country: KR (occurrence: KR)
  Receive Date: 20201105
  Receipt Date: 20201204
  Transmission Date: 20210114
  Serious: No
  Sender: FDA-Public Use
  Company Number: KR-JNJFOC-20201035512

PATIENT

DRUGS (3)
  1. DUROGESIC D-TRANS [Suspect]
     Active Substance: FENTANYL
  2. DUROGESIC D-TRANS [Suspect]
     Active Substance: FENTANYL
     Indication: PRODUCT USED FOR UNKNOWN INDICATION
     Dosage: STRENGTH:  25.00 MCG/H
     Route: 062
  3. DUROGESIC D-TRANS [Suspect]
     Active Substance: FENTANYL

REACTIONS (1)
  - Product adhesion issue [Unknown]
